FAERS Safety Report 18485089 (Version 1)
Quarter: 2020Q4

REPORT INFORMATION
  Report Type: Spontaneous
  Country: US (occurrence: US)
  Receive Date: 20201110
  Receipt Date: 20201110
  Transmission Date: 20210114
  Serious: Yes (Death, Hospitalization)
  Sender: FDA-Public Use
  Company Number: US-MACLEODS PHARMACEUTICALS US LTD-MAC2020029009

PATIENT

DRUGS (1)
  1. LOSARTAN 100 MG TABLET (LOSARTAN POTASSIUM) [Suspect]
     Active Substance: LOSARTAN POTASSIUM
     Indication: HYPERTENSION
     Dosage: 100 MILLIGRAM, QD
     Route: 048
     Dates: start: 2017

REACTIONS (4)
  - Abdominal neoplasm [Fatal]
  - Hepatic neoplasm [Fatal]
  - Neoplasm malignant [Fatal]
  - Small intestine carcinoma [Fatal]
